FAERS Safety Report 20332992 (Version 1)
Quarter: 2022Q1

REPORT INFORMATION
  Report Type: Spontaneous
  Country: FR (occurrence: FR)
  Receive Date: 20220113
  Receipt Date: 20220113
  Transmission Date: 20220423
  Serious: Yes (Hospitalization)
  Sender: FDA-Public Use
  Company Number: None

PATIENT
  Age: 1 Day
  Sex: Female

DRUGS (3)
  1. PACLITAXEL [Suspect]
     Active Substance: PACLITAXEL
     Indication: Intraductal proliferative breast lesion
     Dosage: LAST CURE
     Route: 041
     Dates: start: 20211209, end: 20211209
  2. PACLITAXEL [Suspect]
     Active Substance: PACLITAXEL
     Dosage: 4 COURSES IN TOTAL
     Route: 041
  3. DOXORUBICIN [Suspect]
     Active Substance: DOXORUBICIN
     Indication: Intraductal proliferative breast lesion
     Dosage: 4 CURES IN TOTAL , CHLORHYDRATE DE DOXORUBICINE
     Route: 041

REACTIONS (2)
  - Foetal malnutrition [Not Recovered/Not Resolved]
  - Foetal growth restriction [Not Recovered/Not Resolved]

NARRATIVE: CASE EVENT DATE: 20211201
